FAERS Safety Report 25740144 (Version 4)
Quarter: 2025Q3

REPORT INFORMATION
  Report Type: Report from Study
  Country: EU (occurrence: EU)
  Receive Date: 20250829
  Receipt Date: 20250924
  Transmission Date: 20251021
  Serious: Yes (Hospitalization, Other)
  Sender: ROCHE
  Company Number: EU-ML39632-2656702-0

PATIENT
  Age: 71 Year
  Sex: Male
  Weight: 81 kg

DRUGS (9)
  1. OCREVUS [Suspect]
     Active Substance: OCRELIZUMAB
     Indication: Relapsing-remitting multiple sclerosis
     Route: 042
     Dates: start: 20231108, end: 20231124
  2. BIONTECH vaccination [Concomitant]
     Indication: COVID-19
     Route: 030
     Dates: start: 20210629, end: 20210629
  3. BIONTECH vaccination [Concomitant]
     Route: 030
     Dates: start: 20211129, end: 20211129
  4. CHOLECALCIFEROL [Concomitant]
     Active Substance: CHOLECALCIFEROL
     Indication: Vitamin D deficiency
     Route: 048
     Dates: start: 20200306
  5. Methylprednisolut [Concomitant]
     Route: 042
     Dates: start: 20230717
  6. ASTRAZENECA COVID-19 VACCINE [Concomitant]
     Active Substance: AZD-1222
     Route: 030
     Dates: start: 20210415, end: 20210415
  7. TERIFLUNOMIDE [Concomitant]
     Active Substance: TERIFLUNOMIDE
     Route: 048
     Dates: start: 20200421, end: 20230904
  8. LYRICA [Concomitant]
     Active Substance: PREGABALIN
     Indication: Paraesthesia
     Route: 048
     Dates: start: 20220503
  9. SARS Covid Vaccine [Concomitant]
     Indication: Prophylaxis
     Dates: start: 202309, end: 202309

REACTIONS (4)
  - Pyrexia [Recovered/Resolved]
  - Urinary tract infection [Recovering/Resolving]
  - Nephrolithiasis [Unknown]
  - Urinary tract obstruction [Recovering/Resolving]

NARRATIVE: CASE EVENT DATE: 20250401
